FAERS Safety Report 8143772-5 (Version None)
Quarter: 2012Q1

REPORT INFORMATION
  Report Type: 
  Country: None (occurrence: None)
  Receive Date: 20120217
  Receipt Date: 20120208
  Transmission Date: 20120608
  Serious: Yes (Hospitalization)
  Sender: FDA-Public Use
  Company Number: BE-JNJFOC-20120206356

PATIENT
  Sex: Female

DRUGS (4)
  1. XARELTO [Suspect]
     Indication: CEREBROVASCULAR ACCIDENT PROPHYLAXIS
     Route: 048
     Dates: start: 20111214, end: 20120130
  2. SOTALOL HCL [Concomitant]
  3. AMLODIPINE BESYLATE [Concomitant]
  4. COZAAR [Concomitant]

REACTIONS (2)
  - ANAEMIA [None]
  - MELAENA [None]
